FAERS Safety Report 10619609 (Version 9)
Quarter: 2020Q4

REPORT INFORMATION
  Report Type: Report from Study
  Country: US (occurrence: US)
  Receive Date: 20141202
  Receipt Date: 20201015
  Transmission Date: 20210113
  Serious: Yes (Hospitalization, Other)
  Sender: FDA-Public Use
  Company Number: US-SA-2014SA034015

PATIENT
  Age: 54 Year
  Sex: Female
  Weight: 52.16 kg

DRUGS (6)
  1. TERIFLUNOMIDE. [Suspect]
     Active Substance: TERIFLUNOMIDE
     Dosage: 14 MG,QD
     Route: 048
     Dates: start: 20140312
  2. TERIFLUNOMIDE. [Suspect]
     Active Substance: TERIFLUNOMIDE
     Dosage: 14 MG,QD
     Route: 048
     Dates: end: 20151014
  3. TERIFLUNOMIDE. [Suspect]
     Active Substance: TERIFLUNOMIDE
     Dosage: 14 MG,QD
     Route: 048
     Dates: end: 2016
  4. TERIFLUNOMIDE. [Suspect]
     Active Substance: TERIFLUNOMIDE
     Dosage: 14 MG,QD
     Route: 048
     Dates: start: 2016
  5. TERIFLUNOMIDE. [Suspect]
     Active Substance: TERIFLUNOMIDE
     Indication: MULTIPLE SCLEROSIS
     Dosage: 14 MG,QD
     Route: 048
     Dates: start: 201401
  6. TERIFLUNOMIDE. [Suspect]
     Active Substance: TERIFLUNOMIDE
     Dosage: 14 MG,QD
     Route: 048
     Dates: end: 20150123

REACTIONS (59)
  - Pain [Unknown]
  - Trichorrhexis [Unknown]
  - Eye disorder [Unknown]
  - Skin discolouration [Not Recovered/Not Resolved]
  - Road traffic accident [Recovered/Resolved]
  - Constipation [Unknown]
  - Fatigue [Not Recovered/Not Resolved]
  - Impaired driving ability [Unknown]
  - Muscle spasms [Unknown]
  - Neuralgia [Unknown]
  - Visual impairment [Not Recovered/Not Resolved]
  - Product use issue [Unknown]
  - Multiple fractures [Not Recovered/Not Resolved]
  - Acute respiratory failure [Not Recovered/Not Resolved]
  - Nerve injury [Unknown]
  - Fatigue [Unknown]
  - Arthralgia [Unknown]
  - Musculoskeletal stiffness [Unknown]
  - Dehydration [Recovered/Resolved]
  - Malaise [Unknown]
  - Micturition urgency [Unknown]
  - Dizziness [Unknown]
  - Joint range of motion decreased [Not Recovered/Not Resolved]
  - Feeling abnormal [Unknown]
  - Allergy to chemicals [Recovered/Resolved]
  - Flatulence [Unknown]
  - Memory impairment [Unknown]
  - Somnolence [Unknown]
  - Muscle spasms [Not Recovered/Not Resolved]
  - Road traffic accident [Unknown]
  - Confusional state [Unknown]
  - Arthropathy [Not Recovered/Not Resolved]
  - Bone pain [Unknown]
  - Neck pain [Not Recovered/Not Resolved]
  - Cognitive disorder [Not Recovered/Not Resolved]
  - Osteoarthritis [Unknown]
  - Abdominal distension [Unknown]
  - Nail discolouration [Recovering/Resolving]
  - Asthenia [Unknown]
  - Balance disorder [Unknown]
  - Eyelid disorder [Unknown]
  - Arthralgia [Not Recovered/Not Resolved]
  - Depression [Unknown]
  - Stress [Unknown]
  - Urinary incontinence [Not Recovered/Not Resolved]
  - Dyspnoea [Unknown]
  - Unevaluable event [Unknown]
  - Anxiety [Unknown]
  - Cognitive disorder [Unknown]
  - Decreased appetite [Unknown]
  - Weight decreased [Not Recovered/Not Resolved]
  - Alopecia [Not Recovered/Not Resolved]
  - Headache [Unknown]
  - Ear pain [Unknown]
  - Sleep disorder [Unknown]
  - Lacrimation increased [Unknown]
  - Joint stiffness [Recovered/Resolved]
  - Hypertension [Not Recovered/Not Resolved]
  - Abnormal dreams [Unknown]

NARRATIVE: CASE EVENT DATE: 2014
